FAERS Safety Report 15325645 (Version 1)
Quarter: 2018Q3

REPORT INFORMATION
  Report Type: Spontaneous
  Country: US (occurrence: US)
  Receive Date: 20180822
  Receipt Date: 20180822
  Transmission Date: 20181010
  Serious: Yes (Hospitalization, Disabling)
  Sender: FDA-Public Use
  Company Number: None

PATIENT
  Age: 23 Year
  Sex: Female
  Weight: 56.25 kg

DRUGS (2)
  1. IVERMECTIN. [Suspect]
     Active Substance: IVERMECTIN
     Indication: ROSACEA
     Dosage: ?          OTHER FREQUENCY:ONCE PER WEEK;?
     Route: 048
     Dates: start: 20180702, end: 20180708
  2. SYNTHROID [Concomitant]
     Active Substance: LEVOTHYROXINE SODIUM

REACTIONS (8)
  - Depersonalisation/derealisation disorder [None]
  - Headache [None]
  - Amnesia [None]
  - Feeling abnormal [None]
  - Suicidal ideation [None]
  - Confusional state [None]
  - Somnolence [None]
  - Personality change [None]

NARRATIVE: CASE EVENT DATE: 20180709
